FAERS Safety Report 13588691 (Version 1)
Quarter: 2017Q2

REPORT INFORMATION
  Report Type: Report from Study
  Country: US (occurrence: US)
  Receive Date: 20170529
  Receipt Date: 20170529
  Transmission Date: 20170830
  Serious: Yes (Other)
  Sender: FDA-Public Use
  Company Number: PHEH2017US015032

PATIENT
  Sex: Male

DRUGS (2)
  1. ENTRESTO [Suspect]
     Active Substance: SACUBITRIL\VALSARTAN
     Indication: PRODUCT USED FOR UNKNOWN INDICATION
     Dosage: 0.5 DF, BID
     Route: 065
  2. ENTRESTO [Suspect]
     Active Substance: SACUBITRIL\VALSARTAN
     Dosage: 1 DF, BID
     Route: 065

REACTIONS (9)
  - Cough [Unknown]
  - Blood creatine increased [Recovering/Resolving]
  - Wrong technique in product usage process [Unknown]
  - Fatigue [Unknown]
  - Blood potassium increased [Recovering/Resolving]
  - Dyspnoea [Unknown]
  - Drug prescribing error [Unknown]
  - Renal impairment [Unknown]
  - Pain [Unknown]
